FAERS Safety Report 8854884 (Version 2)
Quarter: 2012Q4

REPORT INFORMATION
  Report Type: 
  Country: US (occurrence: US)
  Receive Date: 20121023
  Receipt Date: 20121130
  Transmission Date: 20130627
  Serious: Yes (Other)
  Sender: FDA-Public Use
  Company Number: US-PFIZER INC-2012262438

PATIENT
  Sex: Male

DRUGS (2)
  1. DEPO-MEDROL [Suspect]
     Indication: BACK INJURY
     Dosage: 80 mg, UNK every two weeks
  2. METHYLPREDNISOLONE ACETATE [Suspect]
     Dosage: UNK

REACTIONS (7)
  - Pulmonary embolism [Unknown]
  - Thrombosis [Unknown]
  - Drug ineffective [Unknown]
  - Pain in extremity [Recovered/Resolved]
  - Blood glucose increased [Unknown]
  - Heart rate increased [Unknown]
  - Oedema peripheral [Unknown]
